FAERS Safety Report 5483048-8 (Version None)
Quarter: 2007Q4

REPORT INFORMATION
  Report Type: 
  Country: None (occurrence: None)
  Receive Date: 20071005
  Receipt Date: 20070326
  Transmission Date: 20080405
  Serious: Yes (Other)
  Sender: FDA-Public Use
  Company Number: 6031462

PATIENT
  Age: 24 Year
  Sex: Male

DRUGS (1)
  1. TERBINAFINE HCL [Suspect]
     Dosage: 250,000 MG (250 MG, 1 IN 1 D)

REACTIONS (1)
  - RHABDOMYOLYSIS [None]
